FAERS Safety Report 5667396-4 (Version None)
Quarter: 2008Q1

REPORT INFORMATION
  Report Type: 
  Country: None (occurrence: None)
  Receive Date: 20080315
  Receipt Date: 20080123
  Transmission Date: 20080703
  Serious: No
  Sender: FDA-Public Use
  Company Number: US-ABBOTT-08P-163-0434645-00

PATIENT
  Sex: Male
  Weight: 90.8 kg

DRUGS (3)
  1. HUMIRA [Suspect]
     Indication: PSORIATIC ARTHROPATHY
     Route: 058
     Dates: start: 20080112
  2. HUMIRA [Suspect]
     Indication: PSORIASIS
  3. POTASSIUM CITRATE [Concomitant]
     Indication: NEPHROLITHIASIS

REACTIONS (1)
  - ACCIDENTAL EXPOSURE [None]
